FAERS Safety Report 22323983 (Version 1)
Quarter: 2023Q2

REPORT INFORMATION
  Report Type: Spontaneous
  Country: US (occurrence: None)
  Receive Date: 20230513
  Receipt Date: 20230513
  Transmission Date: 20230721
  Serious: Yes (Life-Threatening)
  Sender: FDA-Public Use
  Company Number: None

PATIENT
  Sex: 0

DRUGS (2)
  1. GALANTAMINE [Suspect]
     Active Substance: GALANTAMINE
  2. RIVASTIGMINE [Suspect]
     Active Substance: RIVASTIGMINE

REACTIONS (1)
  - Product use issue [None]
